FAERS Safety Report 18203276 (Version 1)
Quarter: 2020Q3

REPORT INFORMATION
  Report Type: Spontaneous
  Country: US (occurrence: US)
  Receive Date: 20200827
  Receipt Date: 20200827
  Transmission Date: 20201103
  Serious: Yes (Other)
  Sender: FDA-Public Use
  Company Number: US-GLAXOSMITHKLINE-US2020170637

PATIENT

DRUGS (1)
  1. VOLTAREN ARTHRITIS PAIN [Suspect]
     Active Substance: DICLOFENAC SODIUM
     Indication: PRODUCT USED FOR UNKNOWN INDICATION
     Dosage: UNK

REACTIONS (7)
  - Systemic infection [Unknown]
  - Skin disorder [Unknown]
  - Scar [Unknown]
  - Rash [Unknown]
  - Skin exfoliation [Unknown]
  - Dermatitis contact [Unknown]
  - Adverse drug reaction [Unknown]
